FAERS Safety Report 8834334 (Version 1)
Quarter: 2012Q4

REPORT INFORMATION
  Report Type: 
  Country: US (occurrence: US)
  Receive Date: 20121010
  Receipt Date: 20121010
  Transmission Date: 20130627
  Serious: No
  Sender: FDA-Public Use
  Company Number: US-PFIZER INC-2012251408

PATIENT
  Age: 58 Year
  Sex: Male

DRUGS (4)
  1. SERTRALINE HCL [Suspect]
     Dosage: UNK, 1x/day
     Route: 048
     Dates: start: 20111026
  2. AMBIEN [Concomitant]
     Dosage: UNK
  3. PREVACID [Concomitant]
     Dosage: UNK
  4. ACIPHEX [Concomitant]
     Dosage: UNK

REACTIONS (1)
  - Drug ineffective [Unknown]
